FAERS Safety Report 7095902-4 (Version None)
Quarter: 2010Q4

REPORT INFORMATION
  Report Type: 
  Country: None (occurrence: None)
  Receive Date: 20101109
  Receipt Date: 20101109
  Transmission Date: 20110411
  Serious: Yes (Hospitalization)
  Sender: FDA-Public Use
  Company Number: None

PATIENT
  Age: 51 Year
  Sex: Female
  Weight: 68.4932 kg

DRUGS (3)
  1. VANCOMYCIN [Suspect]
     Indication: STAPHYLOCOCCAL INFECTION
     Dosage: 2 GM DAILY IV DRIP
     Route: 041
     Dates: start: 20101019, end: 20101108
  2. DEXAMETHASONE [Concomitant]
  3. DIPHENHYDRAMINE [Concomitant]

REACTIONS (3)
  - RASH ERYTHEMATOUS [None]
  - SKIN EXFOLIATION [None]
  - URTICARIA [None]
